FAERS Safety Report 7274853-6 (Version None)
Quarter: 2011Q1

REPORT INFORMATION
  Report Type: 
  Country: None (occurrence: None)
  Receive Date: 20110128
  Receipt Date: 20110113
  Transmission Date: 20110831
  Serious: No
  Sender: FDA-Public Use
  Company Number: JP-2011-10011

PATIENT

DRUGS (7)
  1. WARFARIN [Concomitant]
  2. FAMOTIDINE [Concomitant]
  3. FUROSEMIDE [Concomitant]
  4. ENALAPRIL MALEATE [Concomitant]
  5. CARBOCISTEINE [Concomitant]
  6. PLETAL [Suspect]
     Indication: PRODUCT USED FOR UNKNOWN INDICATION
     Dosage: ORAL
     Route: 048
  7. SPIRONOLACTONE [Concomitant]

REACTIONS (1)
  - CHOLECYSTITIS ACUTE [None]
